FAERS Safety Report 8540829-1 (Version None)
Quarter: 2012Q2

REPORT INFORMATION
  Report Type: 
  Country: None (occurrence: None)
  Receive Date: 20120412
  Receipt Date: 20090107
  Transmission Date: 20120825
  Serious: Yes (Hospitalization, Other)
  Sender: FDA-Public Use
  Company Number: PHEH2009US00530

PATIENT
  Sex: Female

DRUGS (5)
  1. ZOMETA [Suspect]
     Indication: BREAST CANCER METASTATIC
     Dosage: 4 MG, QMO
     Dates: start: 20010301, end: 20020601
  2. RADIOTHERAPY (NO INGREDIENTS/SUBSTANCES) [Concomitant]
  3. TAXOL [Concomitant]
  4. TAMOXIFEN CITRATE [Concomitant]
  5. AREDIA [Suspect]
     Indication: BREAST CANCER METASTATIC
     Dosage: 90 MG, QMO, INTRAVENOUS
     Route: 042
     Dates: start: 19980101, end: 20010201

REACTIONS (4)
  - OSTEONECROSIS [None]
  - PURULENT DISCHARGE [None]
  - BONE DISORDER [None]
  - DENTAL FISTULA [None]
